FAERS Safety Report 9718050 (Version 1)
Quarter: 2013Q4

REPORT INFORMATION
  Report Type: Spontaneous
  Country: US (occurrence: US)
  Receive Date: 20131125
  Receipt Date: 20131125
  Transmission Date: 20140711
  Serious: No
  Sender: FDA-Public Use
  Company Number: US-VIVUS-2013V1000470

PATIENT
  Sex: Female

DRUGS (7)
  1. QSYMIA 7.5MG/46MG [Suspect]
     Indication: PRODUCT USED FOR UNKNOWN INDICATION
     Dosage: STARTED AROUND 07-JUN-2013
     Route: 048
     Dates: start: 201306
  2. QSYMIA 3.75MG/23MG [Suspect]
     Indication: PRODUCT USED FOR UNKNOWN INDICATION
     Dosage: STARTED AROUND 07-JUN-2013 AND ENDED AROUND 17-JUN-2013
     Route: 048
     Dates: start: 201306, end: 201306
  3. BYSTOLIC [Concomitant]
     Indication: HYPERTENSION
     Dosage: STARTED AL LEAST 2 YEARS AGO
     Route: 048
  4. LEVOTHYROXINE [Concomitant]
     Indication: HYPOTHYROIDISM
     Dosage: STARTED AT LEAST 2 YEARS AGO
     Route: 048
  5. FLONASE NASAL SPRAY [Concomitant]
     Indication: SEASONAL ALLERGY
     Dosage: STARTED AT LEAST 2 YEARS AGO
     Route: 045
  6. IBUPROFEN [Concomitant]
     Indication: ARTHRITIS
     Dosage: STARTED AT LEAST 2 YEARS AGO
     Route: 048
  7. ATROVENT NASAL SPRAY [Concomitant]
     Indication: SEASONAL ALLERGY
     Dosage: STARTED AT LEAST 2 YEARS AGO
     Route: 045

REACTIONS (1)
  - Inappropriate schedule of drug administration [Recovered/Resolved]
